FAERS Safety Report 22659562 (Version 1)
Quarter: 2023Q2

REPORT INFORMATION
  Report Type: Spontaneous
  Country: US (occurrence: US)
  Receive Date: 20230630
  Receipt Date: 20230630
  Transmission Date: 20230721
  Serious: Yes (Hospitalization, Other)
  Sender: FDA-Public Use
  Company Number: US-GLAND PHARMA LIMITED-2023US002393

PATIENT

DRUGS (7)
  1. HALOPERIDOL [Suspect]
     Active Substance: HALOPERIDOL
     Indication: Mental status changes
     Dosage: 5 MG
     Route: 030
  2. DEXMEDETOMIDINE HYDROCHLORIDE [Suspect]
     Active Substance: DEXMEDETOMIDINE HYDROCHLORIDE
     Indication: Catatonia
     Dosage: A LOADING DOSE OF 1 ?G/KG OVER 10 MINUTES
     Route: 042
  3. DEXMEDETOMIDINE HYDROCHLORIDE [Suspect]
     Active Substance: DEXMEDETOMIDINE HYDROCHLORIDE
     Dosage: AN INFUSION OF 1 ?G/KG/H
     Route: 042
  4. LORAZEPAM [Suspect]
     Active Substance: LORAZEPAM
     Indication: Mental status changes
     Dosage: 2 MG
     Route: 065
  5. LORAZEPAM [Suspect]
     Active Substance: LORAZEPAM
     Dosage: 2 MG 6 TIMES A DAY,  GRADUALLY TAPERED DOWN AFTER DAY 3
     Route: 065
  6. RISPERIDONE [Suspect]
     Active Substance: RISPERIDONE
     Indication: Substance-induced psychotic disorder
     Dosage: 0.5 MG, BID
     Route: 065
  7. RISPERIDONE [Suspect]
     Active Substance: RISPERIDONE
     Indication: Delirium
     Dosage: 2 MG, BID
     Route: 065

REACTIONS (3)
  - Catatonia [Recovered/Resolved]
  - Electrocardiogram QT prolonged [Recovered/Resolved]
  - Drug effect less than expected [Recovered/Resolved]
